FAERS Safety Report 8188203-4 (Version None)
Quarter: 2012Q1

REPORT INFORMATION
  Report Type: 
  Country: None (occurrence: None)
  Receive Date: 20120306
  Receipt Date: 20120229
  Transmission Date: 20120608
  Serious: Yes (Hospitalization)
  Sender: FDA-Public Use
  Company Number: FR-ASTRAZENECA-2012SE09552

PATIENT
  Age: 941 Month
  Sex: Female

DRUGS (9)
  1. FUNGIZONE [Concomitant]
     Route: 048
     Dates: start: 20120112, end: 20120117
  2. QUETIAPINE FUMARATE [Suspect]
     Indication: PERSONALITY DISORDER
     Route: 048
     Dates: start: 20111213, end: 20120130
  3. ASPIRIN [Concomitant]
     Route: 048
  4. PRAZEPAM [Concomitant]
     Indication: ANXIETY
     Route: 048
  5. ATACAND [Concomitant]
     Indication: HYPERTENSION
     Route: 048
  6. HYPERIUM [Concomitant]
     Indication: HYPERTENSION
     Route: 048
  7. FLUCONAZOLE [Suspect]
     Indication: ORAL FUNGAL INFECTION
     Route: 048
     Dates: start: 20120120, end: 20120130
  8. ALOPLASTINE [Concomitant]
     Route: 003
     Dates: start: 20120120, end: 20120129
  9. NEXIUM [Concomitant]
     Route: 048

REACTIONS (1)
  - DERMATITIS BULLOUS [None]
